FAERS Safety Report 6574913-9 (Version None)
Quarter: 2010Q1

REPORT INFORMATION
  Report Type: 
  Country: None (occurrence: None)
  Receive Date: 20100202
  Receipt Date: 20100126
  Transmission Date: 20100710
  Serious: Yes (Hospitalization, Other)
  Sender: FDA-Public Use
  Company Number: TPA2010A00319

PATIENT
  Age: 60 Year
  Sex: Female
  Weight: 54.4316 kg

DRUGS (4)
  1. PREVACID [Suspect]
     Indication: ERUCTATION
     Dosage: 30 MG, 1 IN 1 D, PER ORAL
     Route: 048
     Dates: start: 20050101, end: 20100101
  2. PREVACID [Suspect]
     Indication: THROAT TIGHTNESS
     Dosage: 30 MG, 1 IN 1 D, PER ORAL
     Route: 048
     Dates: start: 20050101, end: 20100101
  3. DILTIAZEM [Concomitant]
  4. XANAX [Concomitant]

REACTIONS (3)
  - DYSPEPSIA [None]
  - GALLBLADDER DISORDER [None]
  - SINUSITIS [None]
